FAERS Safety Report 14966069 (Version 1)
Quarter: 2018Q3

REPORT INFORMATION
  Report Type: Spontaneous
  Country: US (occurrence: US)
  Receive Date: 20180603
  Receipt Date: 20180603
  Transmission Date: 20181010
  Serious: No
  Sender: FDA-Public Use
  Company Number: US-TEVA-2018-US-897908

PATIENT
  Sex: Female

DRUGS (2)
  1. TEVA GABAPENTIN [Suspect]
     Active Substance: GABAPENTIN
     Indication: NEURALGIA
  2. TEVA GABAPENTIN [Suspect]
     Active Substance: GABAPENTIN
     Indication: TREMOR
     Dates: start: 2014

REACTIONS (3)
  - Rash [Unknown]
  - Product quality issue [Unknown]
  - Pruritus [Unknown]

NARRATIVE: CASE EVENT DATE: 2014
